FAERS Safety Report 8014787-2 (Version None)
Quarter: 2011Q4

REPORT INFORMATION
  Report Type: 
  Country: None (occurrence: None)
  Receive Date: 20111229
  Receipt Date: 20111219
  Transmission Date: 20120403
  Serious: Yes (Other)
  Sender: FDA-Public Use
  Company Number: NO-BAUSCH-2011BL009040

PATIENT
  Age: 76 Year
  Sex: Female

DRUGS (8)
  1. CHLORAMPHENICOL [Suspect]
     Indication: ANTIBIOTIC PROPHYLAXIS
     Route: 061
  2. DEXAMETHASONE [Suspect]
     Route: 061
  3. CYCLOPENTOLATE HCL [Suspect]
     Indication: PREOPERATIVE CARE
     Route: 061
  4. POVIDONE IODINE [Suspect]
     Indication: PREOPERATIVE CARE
     Route: 047
  5. DEXAMETHASONE [Suspect]
     Indication: PREOPERATIVE CARE
     Route: 061
  6. CHLORAMPHENICOL [Suspect]
     Route: 061
  7. PHENYLEPHRINE HCL [Suspect]
     Indication: PREOPERATIVE CARE
     Route: 061
  8. CEFUROXIME [Suspect]
     Indication: ANTIBIOTIC PROPHYLAXIS
     Route: 031

REACTIONS (1)
  - ENDOPHTHALMITIS [None]
